FAERS Safety Report 13070558 (Version 1)
Quarter: 2016Q4

REPORT INFORMATION
  Report Type: Spontaneous
  Country: US (occurrence: US)
  Receive Date: 20161229
  Receipt Date: 20161229
  Transmission Date: 20170207
  Serious: No
  Sender: FDA-Public Use
  Company Number: US-AUROBINDO-AUR-APU-2016-08083

PATIENT
  Age: 71 Year
  Sex: Female
  Weight: 69.85 kg

DRUGS (3)
  1. SUMATRIPTAN. [Suspect]
     Active Substance: SUMATRIPTAN
     Indication: MIGRAINE
     Dosage: 100 MG, UNK
     Route: 065
  2. NAPROXEN TABLETS USP 500MG [Suspect]
     Active Substance: NAPROXEN
     Indication: MIGRAINE
     Dosage: ONE TABLET 500 MG TAKEN WITH SUMATRIPTAN TABLET 100 MG
     Route: 065
  3. ADVIL (MEFENAMIC ACID) [Concomitant]
     Active Substance: MEFENAMIC ACID
     Indication: PRODUCT USED FOR UNKNOWN INDICATION
     Route: 065

REACTIONS (1)
  - Therapeutic response unexpected [Recovered/Resolved]
